FAERS Safety Report 24570794 (Version 1)
Quarter: 2024Q4

REPORT INFORMATION
  Report Type: Report from Study
  Country: ES (occurrence: ES)
  Receive Date: 20241101
  Receipt Date: 20241101
  Transmission Date: 20250114
  Serious: Yes (Death, Other)
  Sender: ABBVIE
  Company Number: ES-JNJFOC-20241075019

PATIENT

DRUGS (1)
  1. IMBRUVICA [Suspect]
     Active Substance: IBRUTINIB
     Indication: Chronic lymphocytic leukaemia
     Route: 048

REACTIONS (22)
  - Death [Fatal]
  - Neutropenia [Fatal]
  - Fungal infection [Unknown]
  - Richter^s syndrome [Fatal]
  - Diarrhoea [Unknown]
  - Chronic lymphocytic leukaemia [Fatal]
  - Ischaemic stroke [Fatal]
  - Atrial fibrillation [Fatal]
  - Palpitations [Unknown]
  - Dyslipidaemia [Unknown]
  - Myocardial ischaemia [Fatal]
  - Hypertension [Unknown]
  - Haemorrhage [Unknown]
  - Arthralgia [Unknown]
  - Diabetes mellitus [Fatal]
  - Asthenia [Unknown]
  - Hypertension [Unknown]
  - Pneumonia [Fatal]
  - Infection [Unknown]
  - Haemorrhage [Unknown]
  - COVID-19 [Unknown]
  - Pericardial effusion [Fatal]
